FAERS Safety Report 8906706 (Version 1)
Quarter: 2012Q4

REPORT INFORMATION
  Report Type: 
  Country: None (occurrence: US)
  Receive Date: 20121114
  Receipt Date: 20121114
  Transmission Date: 20130627
  Serious: Yes (Hospitalization)
  Sender: FDA-Public Use
  Company Number: US-EISAI INC-E2020-11611-SPO-US

PATIENT
  Age: 65 Year
  Sex: Female

DRUGS (1)
  1. DONEPEZIL [Suspect]
     Indication: ALZHEIMER^S DISEASE
     Route: 048

REACTIONS (1)
  - Mania [Not Recovered/Not Resolved]
